FAERS Safety Report 13352571 (Version 2)
Quarter: 2017Q1

REPORT INFORMATION
  Report Type: Report from Study
  Country: DE (occurrence: DE)
  Receive Date: 20170320
  Receipt Date: 20170322
  Transmission Date: 20170429
  Serious: Yes (Hospitalization, Other)
  Sender: FDA-Public Use
  Company Number: PHHY2016DE081248

PATIENT
  Sex: Female
  Weight: 57 kg

DRUGS (2)
  1. VOTRIENT [Suspect]
     Active Substance: PAZOPANIB HYDROCHLORIDE
     Indication: METASTATIC RENAL CELL CARCINOMA
     Dosage: 800 MG, QD
     Route: 048
     Dates: start: 20160502, end: 20160507
  2. METOPROLOL SUCCINAT BETA [Concomitant]
     Indication: HYPERTENSION
     Dosage: 47.5 MG, BID (23.75 MG/-47.5 MG/-95 MG)
     Route: 048
     Dates: start: 201603

REACTIONS (4)
  - Electrolyte imbalance [Recovered/Resolved]
  - Hypertensive crisis [Recovered/Resolved]
  - Prerenal failure [Recovered/Resolved]
  - Blood creatinine increased [Unknown]

NARRATIVE: CASE EVENT DATE: 20160503
